FAERS Safety Report 19503272 (Version 3)
Quarter: 2021Q3

REPORT INFORMATION
  Report Type: Spontaneous
  Country: FR (occurrence: FR)
  Receive Date: 20210707
  Receipt Date: 20210821
  Transmission Date: 20211014
  Serious: Yes (Death, Hospitalization, Other)
  Sender: FDA-Public Use
  Company Number: FR-AMGEN-FRANI2021103386

PATIENT
  Age: 78 Year
  Sex: Male

DRUGS (1)
  1. LUMAKRAS [Suspect]
     Active Substance: SOTORASIB
     Indication: NON-SMALL CELL LUNG CANCER
     Dosage: UNK
     Route: 065
     Dates: start: 20210601, end: 20210628

REACTIONS (8)
  - Femoral neck fracture [Unknown]
  - General physical health deterioration [Unknown]
  - Fall [Unknown]
  - Systemic inflammatory response syndrome [Unknown]
  - Acute kidney injury [Fatal]
  - Tumour lysis syndrome [Fatal]
  - Hypocalcaemia [Fatal]
  - Non-small cell lung cancer [Unknown]
